FAERS Safety Report 9258656 (Version 3)
Quarter: 2013Q4

REPORT INFORMATION
  Report Type: Spontaneous
  Country: US (occurrence: US)
  Receive Date: 20130426
  Receipt Date: 20131104
  Transmission Date: 20140711
  Serious: Yes (Other)
  Sender: FDA-Public Use
  Company Number: US-PFIZER INC-2013128015

PATIENT
  Age: 90 Year
  Sex: Female
  Weight: 58.1 kg

DRUGS (2)
  1. LEVOXYL [Suspect]
     Indication: ROUTINE HEALTH MAINTENANCE
     Dosage: 88 UG, 1X/DAY
     Dates: start: 1995
  2. LIPITOR [Suspect]
     Indication: ROUTINE HEALTH MAINTENANCE
     Dosage: 40 MG, 2X/DAY
     Dates: start: 1995

REACTIONS (4)
  - Glaucoma [Unknown]
  - Rash [Not Recovered/Not Resolved]
  - Dizziness [Not Recovered/Not Resolved]
  - Drug intolerance [Unknown]
